FAERS Safety Report 4581300-1 (Version None)
Quarter: 2005Q1

REPORT INFORMATION
  Report Type: 
  Country: None (occurrence: None)
  Receive Date: 20050214
  Receipt Date: 20040922
  Transmission Date: 20050727
  Serious: No
  Sender: FDA-Public Use
  Company Number: US-GLAXOSMITHKLINE-A0526861A

PATIENT
  Age: 40 Year
  Sex: Female

DRUGS (9)
  1. LAMICTAL [Suspect]
     Indication: BIPOLAR DISORDER
     Dosage: 25MG ALTERNATE DAYS
     Route: 048
  2. DEPAKOTE [Concomitant]
  3. ZOLOFT [Concomitant]
  4. BUPROPION [Concomitant]
  5. PREVACID [Concomitant]
  6. PRILOSEC [Concomitant]
  7. IRON SUPPLEMENT [Concomitant]
  8. VITAMIN B COMPLEX CAP [Concomitant]
  9. ROYAL JELLY [Concomitant]

REACTIONS (3)
  - CHILLS [None]
  - PHARYNGOLARYNGEAL PAIN [None]
  - THERAPEUTIC RESPONSE UNEXPECTED [None]
